FAERS Safety Report 21508644 (Version 1)
Quarter: 2022Q4

REPORT INFORMATION
  Report Type: Spontaneous
  Country: CA (occurrence: CA)
  Receive Date: 20221026
  Receipt Date: 20221026
  Transmission Date: 20230113
  Serious: Yes (Death, Other)
  Sender: FDA-Public Use
  Company Number: CA-PFIZER INC-2020064957

PATIENT
  Age: 69 Year
  Sex: Female

DRUGS (1)
  1. SUTENT [Suspect]
     Active Substance: SUNITINIB MALATE
     Dosage: 37.5 MG, CYCLIC (DAILY FOR 4 WEEKS, 1 WEEK BREAK AFTER 4 WEEKS AS NEEDED)
     Route: 048
     Dates: start: 20200221

REACTIONS (1)
  - Death [Fatal]
